FAERS Safety Report 18779337 (Version 2)
Quarter: 2021Q1

REPORT INFORMATION
  Report Type: Spontaneous
  Country: DK (occurrence: DK)
  Receive Date: 20210125
  Receipt Date: 20210210
  Transmission Date: 20210419
  Serious: Yes (Other)
  Sender: FDA-Public Use
  Company Number: DK-SA-2021SA015979

PATIENT
  Age: 25 Year
  Sex: Male

DRUGS (10)
  1. TETRACYCLINE HYDROCHLORIDE. [Suspect]
     Active Substance: TETRACYCLINE HYDROCHLORIDE
     Indication: HIDRADENITIS
     Dosage: UNKNOWN
     Route: 065
  2. PENICILLIN [PENICILLIN NOS] [Suspect]
     Active Substance: PENICILLIN
     Indication: HIDRADENITIS
     Dosage: UNKNOWN
     Route: 065
  3. DOXYCYCLINE. [Suspect]
     Active Substance: DOXYCYCLINE
     Indication: HIDRADENITIS
     Dosage: UNKNOWN
     Route: 065
  4. CIPROFLOXACIN HYDROCHLORIDE. [Suspect]
     Active Substance: CIPROFLOXACIN HYDROCHLORIDE
     Indication: HIDRADENITIS
     Dosage: UNKNOWN
     Route: 065
  5. BENZOYL PEROXIDE;CLINDAMYCIN [Suspect]
     Active Substance: BENZOYL PEROXIDE\CLINDAMYCIN
     Indication: HIDRADENITIS
     Dosage: UNKNOWN
     Route: 065
  6. ADALIMUMAB [Suspect]
     Active Substance: ADALIMUMAB
     Indication: HIDRADENITIS
     Dosage: UNKNOWN
     Route: 065
  7. RIFAMPICIN [Suspect]
     Active Substance: RIFAMPIN
     Indication: HIDRADENITIS
     Dosage: UNKNOWN
     Route: 065
  8. AZATHIOPRINE. [Suspect]
     Active Substance: AZATHIOPRINE
     Indication: HIDRADENITIS
     Dosage: UNKNOWN
     Route: 065
  9. DICLOXACILLIN [Suspect]
     Active Substance: DICLOXACILLIN
     Indication: HIDRADENITIS
     Dosage: UNKNOWN
     Route: 065
  10. PENICILLIN [PENICILLIN NOS] [Suspect]
     Active Substance: PENICILLIN
     Dosage: UNKNOWN
     Route: 065

REACTIONS (1)
  - Hidradenitis [Recovering/Resolving]
